FAERS Safety Report 8041405-X (Version None)
Quarter: 2012Q1

REPORT INFORMATION
  Report Type: 
  Country: None (occurrence: None)
  Receive Date: 20120112
  Receipt Date: 20120104
  Transmission Date: 20120608
  Serious: Yes (Hospitalization)
  Sender: FDA-Public Use
  Company Number: US-BAYER-2011-079561

PATIENT
  Age: 37 Year
  Sex: Female
  Weight: 70.295 kg

DRUGS (2)
  1. PRILOSEC [Concomitant]
     Route: 048
  2. YASMIN [Suspect]
     Indication: CONTRACEPTION
     Dosage: UNK
     Dates: start: 20080101, end: 20080801

REACTIONS (6)
  - PAIN [None]
  - EMOTIONAL DISTRESS [None]
  - CHOLELITHIASIS [None]
  - INJURY [None]
  - GALLBLADDER INJURY [None]
  - SCAR [None]
